FAERS Safety Report 8762051 (Version 2)
Quarter: 2012Q4

REPORT INFORMATION
  Report Type: 
  Country: CN (occurrence: CN)
  Receive Date: 20120829
  Receipt Date: 20120905
  Transmission Date: 20130627
  Serious: Yes (Other)
  Sender: FDA-Public Use
  Company Number: CN-PFIZER INC-2012211254

PATIENT
  Age: 62 Year
  Sex: Female

DRUGS (1)
  1. CORDARONE [Suspect]
     Indication: DYSPNOEA
     Dosage: 0.2 mg, daily
     Route: 048
     Dates: start: 20090708, end: 20090708

REACTIONS (6)
  - Atrial fibrillation [Unknown]
  - Atrioventricular block [Unknown]
  - Dizziness [Unknown]
  - Salivary hypersecretion [Unknown]
  - Decreased appetite [Unknown]
  - Nausea [Recovered/Resolved]
